FAERS Safety Report 25084569 (Version 1)
Quarter: 2025Q1

REPORT INFORMATION
  Report Type: Spontaneous
  Country: KR (occurrence: KR)
  Receive Date: 20250317
  Receipt Date: 20250317
  Transmission Date: 20250409
  Serious: Yes (Other)
  Sender: CHEPLAPHARM
  Company Number: KR-CKD-20250311003

PATIENT
  Sex: Male

DRUGS (1)
  1. CLONAZEPAM [Suspect]
     Active Substance: CLONAZEPAM
     Indication: Rapid eye movement sleep behaviour disorder
     Dosage: PRESCRIBED TO TAKE 1/2?TABLET DAILY BUT ASKED IF HE COULD TAKE ONLY 1/4 TABLET DUE TO ADVERSE EV...

REACTIONS (5)
  - Arrhythmia [Unknown]
  - Weight decreased [Unknown]
  - Cough [Unknown]
  - Asthenia [Unknown]
  - Product used for unknown indication [Unknown]

NARRATIVE: CASE EVENT DATE: 20240201
